FAERS Safety Report 8826463 (Version 2)
Quarter: 2013Q1

REPORT INFORMATION
  Report Type: Report from Study
  Country: JP (occurrence: JP)
  Receive Date: 20121005
  Receipt Date: 20130128
  Transmission Date: 20140127
  Serious: Yes (Other)
  Sender: FDA-Public Use
  Company Number: JP-VERTEX PHARMACEUTICAL INC.-AE-2012-007328

PATIENT
  Age: 61 Year
  Sex: Male

DRUGS (17)
  1. VX-950 (TELAPREVIR) [Suspect]
     Indication: CHRONIC HEPATITIS C
     Dosage: 1500 MG, QD
     Route: 048
     Dates: start: 20120330, end: 20120531
  2. VX-950 (TELAPREVIR) [Suspect]
     Dosage: 1500 MG, QD
     Route: 048
     Dates: start: 20120621, end: 20120628
  3. RIBAVIRIN [Suspect]
     Indication: CHRONIC HEPATITIS C
     Dosage: 600 MG, QD
     Route: 048
     Dates: start: 20120330, end: 20120419
  4. RIBAVIRIN [Suspect]
     Dosage: 400 MG, QD
     Route: 048
     Dates: start: 20120420, end: 20120423
  5. RIBAVIRIN [Suspect]
     Dosage: 200 MG, QD
     Route: 048
     Dates: start: 20120424, end: 20120517
  6. RIBAVIRIN [Suspect]
     Dosage: 200 MG, QD
     Route: 048
     Dates: start: 20120524, end: 20120531
  7. RIBAVIRIN [Suspect]
     Dosage: 200 MG, QD
     Route: 048
     Dates: start: 20120704, end: 20120726
  8. RIBAVIRIN [Suspect]
     Dosage: 200 MG, QD
     Route: 048
     Dates: start: 20120809, end: 20120823
  9. RIBAVIRIN [Suspect]
     Dosage: 200 MG, QD
     Route: 048
     Dates: start: 20120903, end: 20120907
  10. PEGINTERFERON ALFA-2B [Suspect]
     Indication: CHRONIC HEPATITIS C
     Dosage: 1.5 UNK, UNK
     Route: 058
     Dates: start: 20120330, end: 20120614
  11. PEGINTERFERON ALFA-2B [Suspect]
     Dosage: 0.94 UNK, UNK
     Route: 058
     Dates: start: 20120621, end: 20120621
  12. PEGINTERFERON ALFA-2B [Suspect]
     Dosage: 1.5 UNK, UNK
     Route: 058
     Dates: start: 20120629, end: 20120809
  13. PEGINTERFERON ALFA-2B [Suspect]
     Dosage: 0.75 UNK, UNK
     Route: 058
     Dates: start: 20120817, end: 20120817
  14. PEGINTERFERON ALFA-2B [Suspect]
     Dosage: 1.25 UNK, UNK
     Route: 058
     Dates: start: 20120823, end: 20120823
  15. PEGINTERFERON ALFA-2B [Suspect]
     Dosage: 1.5 UNK, UNK
     Route: 058
     Dates: start: 20120831, end: 20120913
  16. MUCOSTA [Concomitant]
     Route: 048
  17. LOXONIN [Concomitant]
     Route: 048

REACTIONS (3)
  - Neutrophil count decreased [Not Recovered/Not Resolved]
  - Neutrophil count decreased [Recovered/Resolved]
  - White blood cell count decreased [Recovered/Resolved]
